FAERS Safety Report 9677904 (Version 1)
Quarter: 2013Q4

REPORT INFORMATION
  Report Type: Spontaneous
  Country: FR (occurrence: FR)
  Receive Date: 20131108
  Receipt Date: 20131108
  Transmission Date: 20140711
  Serious: Yes (Hospitalization)
  Sender: FDA-Public Use
  Company Number: FR-009507513-1311FRA001033

PATIENT
  Age: 86 Year
  Sex: Female

DRUGS (1)
  1. SINEMET UNSCORED TABLET [Suspect]
     Indication: PARKINSON^S DISEASE
     Route: 048

REACTIONS (3)
  - Sepsis [Unknown]
  - Parkinson^s disease [Unknown]
  - Wrong technique in drug usage process [Unknown]
